FAERS Safety Report 10959094 (Version 2)
Quarter: 2015Q2

REPORT INFORMATION
  Report Type: Spontaneous
  Country: US (occurrence: US)
  Receive Date: 20150327
  Receipt Date: 20150525
  Transmission Date: 20150821
  Serious: No
  Sender: FDA-Public Use
  Company Number: US-JNJFOC-20150310450

PATIENT
  Sex: Female

DRUGS (4)
  1. DURAGESIC [Suspect]
     Active Substance: FENTANYL
     Indication: CYST
     Route: 062
     Dates: start: 201502, end: 201502
  2. DURAGESIC [Suspect]
     Active Substance: FENTANYL
     Indication: CYST
     Route: 062
     Dates: start: 201502
  3. DURAGESIC [Suspect]
     Active Substance: FENTANYL
     Indication: FIBROMYALGIA
     Route: 062
     Dates: start: 201502, end: 201502
  4. DURAGESIC [Suspect]
     Active Substance: FENTANYL
     Indication: FIBROMYALGIA
     Route: 062
     Dates: start: 201502

REACTIONS (1)
  - Pain [Not Recovered/Not Resolved]

NARRATIVE: CASE EVENT DATE: 201502
